FAERS Safety Report 8849223 (Version 2)
Quarter: 2014Q3

REPORT INFORMATION
  Report Type: Spontaneous
  Country: BE (occurrence: BE)
  Receive Date: 20121019
  Receipt Date: 20140922
  Transmission Date: 20150326
  Serious: Yes (Life-Threatening, Hospitalization, Disabling, Other)
  Sender: FDA-Public Use
  Company Number: BE-JNJFOC-20121006795

PATIENT

DRUGS (2)
  1. INFLIXIMAB, RECOMBINANT [Suspect]
     Active Substance: INFLIXIMAB
     Indication: COLITIS ULCERATIVE
     Dosage: DOSE OF 5 OR 10 MG/KG; INDUCTION WEEKS 0, 2 AND 6
     Route: 042
  2. AZATHIOPRINE. [Concomitant]
     Active Substance: AZATHIOPRINE
     Route: 065

REACTIONS (10)
  - Eczema [Unknown]
  - Dermatitis psoriasiform [Unknown]
  - Infusion related reaction [Unknown]
  - Neoplasm malignant [Unknown]
  - Rash [Unknown]
  - Therapeutic response decreased [Unknown]
  - Inflammation [Unknown]
  - Serum sickness-like reaction [Unknown]
  - Adverse event [Unknown]
  - Type IV hypersensitivity reaction [Unknown]
